FAERS Safety Report 4660362-7 (Version None)
Quarter: 2005Q2

REPORT INFORMATION
  Report Type: 
  Country: None (occurrence: None)
  Receive Date: 20050511
  Receipt Date: 20050511
  Transmission Date: 20051028
  Serious: No
  Sender: FDA-Public Use
  Company Number: None

PATIENT
  Age: 68 Year
  Sex: Male
  Weight: 50 kg

DRUGS (16)
  1. ZYVOX [Suspect]
     Indication: ENDOCARDITIS
     Dosage: 600 MG Q12 H IV
     Route: 042
     Dates: start: 20040919, end: 20040922
  2. CUBICIN [Suspect]
     Indication: ENDOCARDITIS
     Dosage: 200 MG DAILY IV
     Route: 042
     Dates: start: 20040920, end: 20040923
  3. ALBUMIN (HUMAN) [Concomitant]
  4. AMIODARONE HCL [Concomitant]
  5. PROTAMINE [Concomitant]
  6. REGULAR INSULIN [Concomitant]
  7. CYCLOSPORINE [Concomitant]
  8. BUMETANIDE [Concomitant]
  9. HYDROCORTISONE [Concomitant]
  10. LANTUS [Concomitant]
  11. MIDAZOLAM [Concomitant]
  12. MYCOPHENOLATE (CELLCE [Concomitant]
  13. PANTOPRAZOLE [Concomitant]
  14. FENTANYL [Concomitant]
  15. QUINUPRISTIN/DALFOPRISTIN [Concomitant]
  16. LEVOFLOXACIN [Concomitant]

REACTIONS (1)
  - THROMBOCYTOPENIA [None]
